FAERS Safety Report 10197795 (Version 1)
Quarter: 2014Q2

REPORT INFORMATION
  Report Type: Spontaneous
  Country: DE (occurrence: DE)
  Receive Date: 20140527
  Receipt Date: 20140527
  Transmission Date: 20141212
  Serious: Yes (Other)
  Sender: FDA-Public Use
  Company Number: DE-INCYTE CORPORATION-2014IN001297

PATIENT
  Age: 48 Year
  Sex: Male

DRUGS (3)
  1. INCB018424 [Suspect]
     Dosage: UNK
  2. CYTARABIN [Concomitant]
     Dosage: UNK
     Dates: start: 201206
  3. IMMUNOGLOBULINS [Concomitant]

REACTIONS (2)
  - Rash [Unknown]
  - Drug intolerance [Unknown]
